FAERS Safety Report 8136630-3 (Version None)
Quarter: 2012Q1

REPORT INFORMATION
  Report Type: 
  Country: None (occurrence: None)
  Receive Date: 20120214
  Receipt Date: 20120202
  Transmission Date: 20120608
  Serious: Yes (Hospitalization, Other)
  Sender: FDA-Public Use
  Company Number: SE-ELI_LILLY_AND_COMPANY-SE201112004783

PATIENT
  Age: 17 Year
  Sex: Male

DRUGS (5)
  1. STRATTERA [Suspect]
     Indication: ATTENTION DEFICIT/HYPERACTIVITY DISORDER
     Dosage: 80 MG, UNK
  2. KALCIPOS [Concomitant]
     Indication: SUPPLEMENTATION THERAPY
     Dosage: 500 MG, UNK
     Route: 048
  3. ERGENYL ^LABAZ^ [Concomitant]
     Dosage: 500 MG, UNK
     Route: 048
  4. ZYPREXA [Concomitant]
     Dosage: 10 MG, UNK
     Route: 048
  5. DECAPEPTYL                              /SWE/ [Concomitant]
     Dosage: UNK

REACTIONS (4)
  - HOSPITALISATION [None]
  - CONFUSIONAL STATE [None]
  - LOSS OF CONSCIOUSNESS [None]
  - UNRESPONSIVE TO STIMULI [None]
